FAERS Safety Report 12702676 (Version 1)
Quarter: 2016Q3

REPORT INFORMATION
  Report Type: Spontaneous
  Country: AU (occurrence: AU)
  Receive Date: 20160831
  Receipt Date: 20160831
  Transmission Date: 20161109
  Serious: No
  Sender: FDA-Public Use
  Company Number: AU-009507513-1608AUS009033

PATIENT
  Sex: Female

DRUGS (1)
  1. NOVASONE [Suspect]
     Active Substance: MOMETASONE FUROATE
     Dosage: ADMINISTERED A NOVASONE SCALP LOTION IN HER LEFT EYE
     Route: 047

REACTIONS (4)
  - Eye pain [Unknown]
  - Incorrect route of drug administration [Unknown]
  - Ocular discomfort [Unknown]
  - Eye irritation [Unknown]
